FAERS Safety Report 11128684 (Version 1)
Quarter: 2015Q2

REPORT INFORMATION
  Report Type: Spontaneous
  Country: GB (occurrence: None)
  Receive Date: 20150519
  Receipt Date: 20150519
  Transmission Date: 20150821
  Serious: Yes (Other)
  Sender: FDA-Public Use
  Company Number: FK201502232

PATIENT
  Age: 82 Year
  Sex: Male

DRUGS (12)
  1. LANSOPRAZOLE. [Concomitant]
     Active Substance: LANSOPRAZOLE
  2. SYMBICORT [Concomitant]
     Active Substance: BUDESONIDE\FORMOTEROL FUMARATE DIHYDRATE
  3. VITAMIN B COMPLEX STRONG (PABRINEX) [Concomitant]
  4. CLOPIDOGREL [Concomitant]
     Active Substance: CLOPIDOGREL BISULFATE
  5. PARACETAMOL [Concomitant]
     Active Substance: ACETAMINOPHEN
  6. LEVOFLOXACIN (MANUFACTURER UNKNOWN) (LEVOFLOXACIN) (LEVOFLOXACIN) [Suspect]
     Active Substance: LEVOFLOXACIN
     Indication: INFECTION
     Dosage: 500 MG, 2 IN 1 D, INTRAVENOUS (NOT OTHERWISE SEPCIFIED)
     Route: 042
     Dates: start: 20150417, end: 20150424
  7. IRBESARTAN. [Concomitant]
     Active Substance: IRBESARTAN
  8. LERCANIDIPINE [Concomitant]
     Active Substance: LERCANIDIPINE
  9. FOLIC ACID. [Concomitant]
     Active Substance: FOLIC ACID
  10. IPARATROPIUM [Concomitant]
  11. SIMVASTATIN. [Concomitant]
     Active Substance: SIMVASTATIN
  12. THIAMINE [Concomitant]
     Active Substance: THIAMINE

REACTIONS (6)
  - Tachycardia [None]
  - Haemoglobin decreased [None]
  - Urinary tract infection [None]
  - Seizure like phenomena [None]
  - Wheezing [None]
  - Dyspnoea [None]

NARRATIVE: CASE EVENT DATE: 20150419
